FAERS Safety Report 7789152-3 (Version None)
Quarter: 2011Q3

REPORT INFORMATION
  Report Type: 
  Country: None (occurrence: None)
  Receive Date: 20110930
  Receipt Date: 20110921
  Transmission Date: 20111222
  Serious: Yes (Other)
  Sender: FDA-Public Use
  Company Number: US-US-EMD SERONO, INC.-7079649

PATIENT
  Sex: Male

DRUGS (3)
  1. REBIF [Suspect]
     Indication: MULTIPLE SCLEROSIS
     Route: 058
     Dates: start: 20110817
  2. REBIF [Suspect]
     Route: 058
  3. STEROIDS [Concomitant]
     Indication: OPTIC NEURITIS
     Route: 042

REACTIONS (2)
  - OPTIC NEURITIS [None]
  - PAIN [None]
